FAERS Safety Report 6208853-1 (Version None)
Quarter: 2009Q2

REPORT INFORMATION
  Report Type: 
  Country: None (occurrence: None)
  Receive Date: 20090529
  Receipt Date: 20090521
  Transmission Date: 20091009
  Serious: Yes (Other)
  Sender: FDA-Public Use
  Company Number: A0786519A

PATIENT
  Sex: Female

DRUGS (3)
  1. AVANDAMET [Suspect]
     Dosage: 1TAB TWICE PER DAY
     Route: 048
     Dates: end: 20080701
  2. LIPITOR [Concomitant]
  3. ACE INHIBITOR [Concomitant]

REACTIONS (5)
  - ARTERIOSCLEROSIS [None]
  - HAEMORRHAGE INTRACRANIAL [None]
  - HEADACHE [None]
  - MUSCULOSKELETAL STIFFNESS [None]
  - TREATMENT NONCOMPLIANCE [None]
